FAERS Safety Report 11730888 (Version 1)
Quarter: 2015Q4

REPORT INFORMATION
  Report Type: Spontaneous
  Country: US (occurrence: None)
  Receive Date: 20151112
  Receipt Date: 20151112
  Transmission Date: 20160304
  Serious: Yes (Hospitalization, Other)
  Sender: FDA-Public Use
  Company Number: None

PATIENT
  Age: 72 Year
  Sex: Female
  Weight: 68.04 kg

DRUGS (17)
  1. OLIVE LEAF EXTRACT [Concomitant]
  2. D3 [Concomitant]
     Active Substance: 25-HYDROXYCHOLECALCIFEROL, 5-TRANS-
  3. COQ10 [Concomitant]
     Active Substance: UBIDECARENONE
  4. GLUCOSAMINE [Concomitant]
     Active Substance: GLUCOSAMINE
  5. PROLIA [Suspect]
     Active Substance: DENOSUMAB
     Indication: OSTEOPOROSIS POSTMENOPAUSAL
     Dosage: 2 TIMES A YEAR INJECTION?
     Dates: start: 20150430, end: 20151030
  6. VASOTEC [Concomitant]
     Active Substance: ENALAPRIL MALEATE
  7. PAROXETINE [Concomitant]
     Active Substance: PAROXETINE\PAROXETINE HYDROCHLORIDE
  8. GLUCOSAMINE CHONDROTIN MSM [Concomitant]
  9. GARLIC. [Concomitant]
     Active Substance: GARLIC
  10. PAXIL [Concomitant]
     Active Substance: PAROXETINE HYDROCHLORIDE
  11. ATORVASTATIN [Concomitant]
     Active Substance: ATORVASTATIN
  12. VITAMIN C [Concomitant]
     Active Substance: ASCORBIC ACID
  13. VITAMIN E [Concomitant]
     Active Substance: .ALPHA.-TOCOPHEROL
  14. ACETAMINOPHEN. [Concomitant]
     Active Substance: ACETAMINOPHEN
  15. ENALAPRIL [Concomitant]
     Active Substance: ENALAPRIL
  16. CRANBERRY. [Concomitant]
     Active Substance: CRANBERRY
  17. MULTI [Concomitant]

REACTIONS (13)
  - Hip fracture [None]
  - Pruritus [None]
  - Myalgia [None]
  - Blood cholesterol increased [None]
  - Skin disorder [None]
  - Weight increased [None]
  - Fall [None]
  - Nausea [None]
  - Blood calcium decreased [None]
  - Urticaria [None]
  - Urinary tract infection [None]
  - Femur fracture [None]
  - Tinnitus [None]

NARRATIVE: CASE EVENT DATE: 20150830
